FAERS Safety Report 11053970 (Version 2)
Quarter: 2015Q2

REPORT INFORMATION
  Report Type: Spontaneous
  Country: NL (occurrence: NL)
  Receive Date: 20150422
  Receipt Date: 20150424
  Transmission Date: 20150821
  Serious: Yes (Hospitalization)
  Sender: FDA-Public Use
  Company Number: NL-ABBVIE-15K-114-1377683-00

PATIENT
  Sex: Female

DRUGS (2)
  1. HUMIRA [Suspect]
     Active Substance: ADALIMUMAB
     Route: 058
  2. HUMIRA [Suspect]
     Active Substance: ADALIMUMAB
     Indication: CROHN^S DISEASE
     Route: 058
     Dates: start: 2014

REACTIONS (7)
  - Erythema nodosum [Unknown]
  - Rotavirus test positive [Unknown]
  - Haematochezia [Recovered/Resolved]
  - Colitis [Unknown]
  - Drug specific antibody present [Unknown]
  - Diarrhoea [Recovered/Resolved]
  - Perineal fistula [Unknown]

NARRATIVE: CASE EVENT DATE: 201407
